FAERS Safety Report 8612315-1 (Version None)
Quarter: 2012Q3

REPORT INFORMATION
  Report Type: 
  Country: None (occurrence: None)
  Receive Date: 20120822
  Receipt Date: 20120820
  Transmission Date: 20120928
  Serious: No
  Sender: FDA-Public Use
  Company Number: US-BAYER-2012-086533

PATIENT

DRUGS (3)
  1. IBUPROFEN [Suspect]
     Indication: HEADACHE
     Dosage: UNK
     Dates: start: 20120820
  2. EXCEDRIN (MIGRAINE) [Suspect]
     Indication: HEADACHE
     Dosage: UNK
     Dates: start: 20120820
  3. ALEVE (CAPLET) [Suspect]
     Indication: HEADACHE
     Dosage: UNK
     Dates: start: 20120820

REACTIONS (3)
  - EYE PAIN [None]
  - HEADACHE [None]
  - NAUSEA [None]
